FAERS Safety Report 22274439 (Version 1)
Quarter: 2023Q2

REPORT INFORMATION
  Report Type: Spontaneous
  Country: US (occurrence: None)
  Receive Date: 20230501
  Receipt Date: 20230501
  Transmission Date: 20230722
  Serious: Yes (Hospitalization)
  Sender: FDA-Public Use
  Company Number: None

PATIENT
  Age: 63 Year
  Sex: Female

DRUGS (6)
  1. KESIMPTA [Suspect]
     Active Substance: OFATUMUMAB
     Indication: Multiple sclerosis
     Route: 058
     Dates: start: 20221205
  2. ALBUTEROL  0.021% (0.63MG/3ML) 25X 3 ML [Concomitant]
     Dosage: DIRECTIONS: INJ 0.4 ML=(20 MG) SC Q MONTH?
  3. GLIPIZIDE 10 ,G TABLETS [Concomitant]
  4. OXYCONTIN 10 MG CR TABLETS [Concomitant]
  5. PAXIL 10 MG TABLETS [Concomitant]
  6. VALIUM [Concomitant]
     Active Substance: DIAZEPAM

REACTIONS (2)
  - Paralysis [None]
  - Multiple sclerosis [None]
